FAERS Safety Report 5000814-3 (Version None)
Quarter: 2006Q2

REPORT INFORMATION
  Report Type: 
  Country: None (occurrence: None)
  Receive Date: 20060512
  Receipt Date: 20060505
  Transmission Date: 20061013
  Serious: Yes (Hospitalization)
  Sender: FDA-Public Use
  Company Number: US-MERCK-0605USA01435

PATIENT
  Age: 70 Year
  Sex: Female
  Weight: 77 kg

DRUGS (27)
  1. VIOXX [Suspect]
     Indication: PAIN
     Route: 048
     Dates: start: 20020603, end: 20040930
  2. RAMIPRIL [Concomitant]
     Route: 065
  3. DARVOCET-N 100 [Concomitant]
     Route: 065
  4. PANTOPRAZOLE [Concomitant]
     Route: 065
  5. POTASSIUM CHLORIDE [Concomitant]
     Route: 065
  6. LASIX [Concomitant]
     Route: 065
  7. WARFARIN [Concomitant]
     Route: 065
  8. AMIODARONE [Concomitant]
     Route: 065
  9. NORVASC [Concomitant]
     Route: 065
  10. VERELAN [Concomitant]
     Route: 065
  11. SYNTHROID [Concomitant]
     Route: 065
  12. PROPOXYPHENE NAPSYLATE [Concomitant]
     Route: 065
  13. DIOVAN HCT [Concomitant]
     Route: 065
  14. BETAPACE [Concomitant]
     Route: 065
  15. ZITHROMAX [Concomitant]
     Route: 065
  16. DIGOXIN [Concomitant]
     Route: 065
  17. CARTIA (ASPIRIN) [Concomitant]
     Route: 065
  18. TOPROL-XL [Concomitant]
     Route: 065
  19. ZOCOR [Concomitant]
     Route: 048
  20. AMBIEN [Concomitant]
     Route: 065
  21. METOPROLOL [Concomitant]
     Route: 065
  22. ACETAMINOPHEN [Concomitant]
     Route: 065
  23. ATROPINE [Concomitant]
     Route: 065
  24. DOLASETRON MESYLATE [Concomitant]
     Route: 065
  25. DEXTROSE [Concomitant]
     Route: 065
  26. DILTIAZEM HYDROCHLORIDE [Concomitant]
     Route: 065
  27. MAGNESIA [MILK OF] [Concomitant]
     Route: 065

REACTIONS (3)
  - ATRIAL FIBRILLATION [None]
  - CARDIAC FAILURE CONGESTIVE [None]
  - TRANSIENT ISCHAEMIC ATTACK [None]
